FAERS Safety Report 5005390-7 (Version None)
Quarter: 2006Q2

REPORT INFORMATION
  Report Type: 
  Country: None (occurrence: None)
  Receive Date: 20060515
  Receipt Date: 20060505
  Transmission Date: 20061013
  Serious: Yes (Hospitalization)
  Sender: FDA-Public Use
  Company Number: 2006BI006640

PATIENT
  Age: 54 Year
  Sex: Female
  Weight: 86.1834 kg

DRUGS (4)
  1. AVONEX [Suspect]
     Indication: MULTIPLE SCLEROSIS
     Dosage: 15 UG QW IM ; 22.5 UG QW IM ; 30 UG QW IM
     Route: 030
     Dates: start: 20010101, end: 20010101
  2. AVONEX [Suspect]
     Indication: MULTIPLE SCLEROSIS
     Dosage: 15 UG QW IM ; 22.5 UG QW IM ; 30 UG QW IM
     Route: 030
     Dates: start: 20010101, end: 20010101
  3. AVONEX [Suspect]
     Indication: MULTIPLE SCLEROSIS
     Dosage: 15 UG QW IM ; 22.5 UG QW IM ; 30 UG QW IM
     Route: 030
     Dates: start: 20010101, end: 20030801
  4. AVONEX [Suspect]
     Indication: MULTIPLE SCLEROSIS
     Dosage: 30 UG QW IM
     Route: 030
     Dates: start: 20030801

REACTIONS (2)
  - HALLUCINATION [None]
  - MULTIPLE SCLEROSIS RELAPSE [None]
